FAERS Safety Report 5669632-7 (Version None)
Quarter: 2008Q1

REPORT INFORMATION
  Report Type: 
  Country: None (occurrence: None)
  Receive Date: 20080317
  Receipt Date: 20080312
  Transmission Date: 20080703
  Serious: Yes (Hospitalization)
  Sender: FDA-Public Use
  Company Number: ES-BAYER-200814876GPV

PATIENT
  Age: 79 Year
  Sex: Male

DRUGS (2)
  1. ADIRO 300 MG/ ASA [Suspect]
     Indication: CAROTID ARTERY STENOSIS
     Route: 048
  2. CARVEDILOL [Concomitant]
     Indication: HYPERTENSION
     Route: 048

REACTIONS (1)
  - EPISTAXIS [None]
